FAERS Safety Report 8484797-X (Version None)
Quarter: 2012Q3

REPORT INFORMATION
  Report Type: 
  Country: None (occurrence: None)
  Receive Date: 20120703
  Receipt Date: 20120625
  Transmission Date: 20120928
  Serious: Yes (Hospitalization, Disabling)
  Sender: FDA-Public Use
  Company Number: US-BAYER-2012-004143

PATIENT
  Age: 16 Year
  Sex: Female
  Weight: 52.154 kg

DRUGS (3)
  1. DROSPIRENONE AND ETHINYL ESTRADIOL [Suspect]
     Indication: ACNE
     Dosage: UNK
     Dates: start: 20060101
  2. NSAID'S [Concomitant]
     Route: 048
  3. YAZ [Suspect]
     Dosage: UNK

REACTIONS (5)
  - GALLBLADDER INJURY [None]
  - PAIN [None]
  - DEFORMITY [None]
  - CARDIAC DISORDER [None]
  - INJURY [None]
